FAERS Safety Report 5694112-2 (Version None)
Quarter: 2008Q2

REPORT INFORMATION
  Report Type: 
  Country: None (occurrence: None)
  Receive Date: 20080402
  Receipt Date: 20080324
  Transmission Date: 20081010
  Serious: Yes (Hospitalization)
  Sender: FDA-Public Use
  Company Number: 2007BI016198

PATIENT
  Age: 47 Year
  Sex: Female
  Weight: 39.9165 kg

DRUGS (16)
  1. AVONEX [Suspect]
     Indication: MULTIPLE SCLEROSIS
     Dosage: 30 UG; QW; IM
     Route: 030
     Dates: start: 20040801
  2. PREDNISONE [Concomitant]
  3. FENTANYL TRANSDERMAL SYSTEM [Concomitant]
  4. BACLOFEN [Concomitant]
  5. XANAX [Concomitant]
  6. PHENERGAN [Concomitant]
  7. PERCOCET [Concomitant]
  8. VITAMIN D [Concomitant]
  9. METHADONE HCL [Concomitant]
  10. PLAVIX [Concomitant]
  11. ZANTAC [Concomitant]
  12. ADVAIR DISKUS 100/50 [Concomitant]
  13. ZANAFLEX [Concomitant]
  14. IMDUR [Concomitant]
  15. VYTORIN [Concomitant]
  16. OXYGEN [Concomitant]

REACTIONS (7)
  - COUGH [None]
  - DYSPHAGIA [None]
  - MUCOSAL INFLAMMATION [None]
  - NEUTROPENIA [None]
  - OROPHARYNGEAL CANCER STAGE UNSPECIFIED [None]
  - SQUAMOUS CELL CARCINOMA [None]
  - WEIGHT DECREASED [None]
